FAERS Safety Report 17403973 (Version 2)
Quarter: 2020Q1

REPORT INFORMATION
  Report Type: Spontaneous
  Country: AU (occurrence: AU)
  Receive Date: 20200211
  Receipt Date: 20200217
  Transmission Date: 20200409
  Serious: Yes (Other)
  Sender: FDA-Public Use
  Company Number: AU-MYLANLABS-2020M1015506

PATIENT
  Age: 35 Year
  Sex: Female

DRUGS (1)
  1. CLOZARIL [Suspect]
     Active Substance: CLOZAPINE
     Indication: SCHIZOPHRENIA
     Dosage: 250 MILLIGRAM
     Route: 048
     Dates: start: 20090529, end: 202002

REACTIONS (4)
  - Neutrophil count decreased [Recovered/Resolved]
  - Viral infection [Unknown]
  - White blood cell count decreased [Recovered/Resolved]
  - Lymphocyte morphology abnormal [Unknown]

NARRATIVE: CASE EVENT DATE: 202002
